FAERS Safety Report 17063924 (Version 3)
Quarter: 2019Q4

REPORT INFORMATION
  Report Type: Spontaneous
  Country: US (occurrence: US)
  Receive Date: 20191122
  Receipt Date: 20191220
  Transmission Date: 20200122
  Serious: Yes (Death, Hospitalization, Other)
  Sender: FDA-Public Use
  Company Number: US-BTG-201900247

PATIENT
  Age: 54 Year
  Sex: Female
  Weight: 148.8 kg

DRUGS (8)
  1. LEUCOVORIN. [Suspect]
     Active Substance: LEUCOVORIN
     Indication: TOXICITY TO VARIOUS AGENTS
     Dosage: Q6H START 09-NOV-2019 0645 LAST DOSE 12:13??
     Route: 065
     Dates: start: 20191109
  2. LEUCOVORIN. [Suspect]
     Active Substance: LEUCOVORIN
     Indication: TOXICITY TO VARIOUS AGENTS
     Dosage: (100MG/M2) Q3H START 11-NOV-2019 13:03 LAST DOSE 13-NOV-2019 15:20
     Route: 065
     Dates: start: 20191111, end: 20191113
  3. LEUCOVORIN. [Suspect]
     Active Substance: LEUCOVORIN
     Indication: TOXICITY TO VARIOUS AGENTS
     Dosage: Q3H START 13-NOV-2019 20:06 LAST DOSE 15-NOV-2019 14:20
     Route: 065
     Dates: start: 20191113, end: 20191115
  4. MTX [Suspect]
     Active Substance: METHOTREXATE SODIUM
     Indication: PRODUCT USED FOR UNKNOWN INDICATION
     Dosage: 1050 MG BOLUS OVER 15 MIN
     Route: 040
     Dates: start: 20191108
  5. LEUCOVORIN. [Suspect]
     Active Substance: LEUCOVORIN
     Indication: TOXICITY TO VARIOUS AGENTS
     Dosage: Q3H START 09-NOV-2019 13:39 LAST DOSE 11-NOV-2019 08:59
     Route: 065
     Dates: start: 20191109, end: 20191111
  6. VORAXAZE [Suspect]
     Active Substance: GLUCARPIDASE
     Indication: TOXICITY TO VARIOUS AGENTS
     Dosage: GLUCARPIDASE 7400MG (50MG/KG) 11/10/19 15:43
     Route: 065
     Dates: start: 20191110
  7. MTX [Suspect]
     Active Substance: METHOTREXATE SODIUM
     Indication: PRODUCT USED FOR UNKNOWN INDICATION
     Dosage: 07:36 INFUSION 6300 MG OVER 3 HOURS
     Route: 040
     Dates: start: 20191108
  8. LEUCOVORIN. [Suspect]
     Active Substance: LEUCOVORIN
     Indication: TOXICITY TO VARIOUS AGENTS
     Dosage: Q3H START 15-NOV-2019 17:17 LAST DOSE 26-NOV-2019 08:53
     Route: 065
     Dates: start: 20191115, end: 20191126

REACTIONS (4)
  - Acute kidney injury [Recovering/Resolving]
  - Laboratory test interference [Unknown]
  - Death [Fatal]
  - Neurotoxicity [Recovering/Resolving]

NARRATIVE: CASE EVENT DATE: 20191113
